FAERS Safety Report 25938836 (Version 1)
Quarter: 2025Q4

REPORT INFORMATION
  Report Type: Report from Study
  Country: US (occurrence: US)
  Receive Date: 20251019
  Receipt Date: 20251019
  Transmission Date: 20260118
  Serious: Yes (Other)
  Sender: ABBVIE
  Company Number: US-ABBVIE-6505828

PATIENT
  Age: 67 Year
  Sex: Female

DRUGS (2)
  1. CREON [Suspect]
     Active Substance: PANCRELIPASE AMYLASE\PANCRELIPASE LIPASE\PANCRELIPASE PROTEASE
     Indication: Product used for unknown indication
     Route: 048
     Dates: start: 20231017, end: 202401
  2. CREON [Suspect]
     Active Substance: PANCRELIPASE AMYLASE\PANCRELIPASE LIPASE\PANCRELIPASE PROTEASE
     Indication: Product used for unknown indication
     Route: 048
     Dates: start: 20250930

REACTIONS (4)
  - Lymphoma [Not Recovered/Not Resolved]
  - Mesenteric panniculitis [Not Recovered/Not Resolved]
  - Myositis [Not Recovered/Not Resolved]
  - Mesenteric lymphadenitis [Not Recovered/Not Resolved]

NARRATIVE: CASE EVENT DATE: 20240101
